FAERS Safety Report 17657106 (Version 1)
Quarter: 2020Q3

REPORT INFORMATION
  Report Type: Report from Study
  Country: CA (occurrence: CA)
  Receive Date: 20200410
  Receipt Date: 20200410
  Transmission Date: 20201105
  Serious: Yes (Other)
  Sender: FDA-Public Use
  Company Number: CA-ROCHE-2582320

PATIENT

DRUGS (2)
  1. NERINETIDE. [Suspect]
     Active Substance: NERINETIDE
     Indication: ISCHAEMIC STROKE
     Route: 042
  2. ALTEPLASE. [Suspect]
     Active Substance: ALTEPLASE
     Indication: ISCHAEMIC STROKE
     Route: 042

REACTIONS (17)
  - Ischaemic stroke [Unknown]
  - Pneumonia [Unknown]
  - Deep vein thrombosis [Unknown]
  - Pneumonia aspiration [Unknown]
  - Pneumonia bacterial [Unknown]
  - Urosepsis [Unknown]
  - Cardiac failure congestive [Unknown]
  - Haemorrhagic stroke [Unknown]
  - Haemorrhagic transformation stroke [Unknown]
  - Pulmonary embolism [Unknown]
  - Angioedema [Unknown]
  - Stroke in evolution [Unknown]
  - Haemorrhage intracranial [Unknown]
  - Hypotension [Unknown]
  - Urinary tract infection [Unknown]
  - Cerebral haemorrhage [Unknown]
  - Subarachnoid haemorrhage [Unknown]
